FAERS Safety Report 4664532-3 (Version None)
Quarter: 2005Q2

REPORT INFORMATION
  Report Type: 
  Country: None (occurrence: None)
  Receive Date: 20050518
  Receipt Date: 20050415
  Transmission Date: 20051028
  Serious: Yes (Other)
  Sender: FDA-Public Use
  Company Number: US-AMGEN-US127225

PATIENT
  Age: 41 Year
  Sex: Female

DRUGS (4)
  1. ENBREL [Suspect]
     Indication: RHEUMATOID ARTHRITIS
     Route: 058
     Dates: start: 20020101
  2. RELAFEN [Concomitant]
     Dates: start: 20000101
  3. CALCIUM GLUCONATE [Concomitant]
  4. MULTIVIT [Concomitant]

REACTIONS (1)
  - RETINOPATHY [None]
